FAERS Safety Report 6529247-5 (Version None)
Quarter: 2010Q1

REPORT INFORMATION
  Report Type: 
  Country: None (occurrence: None)
  Receive Date: 20100104
  Receipt Date: 20091217
  Transmission Date: 20100710
  Serious: Yes (Hospitalization, Congenital Anomaly, Other)
  Sender: FDA-Public Use
  Company Number: JPI-P-009091

PATIENT
  Sex: Female

DRUGS (5)
  1. LUVOX [Suspect]
     Indication: DRUG EXPOSURE DURING PREGNANCY
     Dosage: 25 MG, 1 D, TRANSPLACENTAL, 75 MG, 1 D, TRANSPLACENTAL, 50 MG, 1 D, TRANSPLACENTAL
     Route: 064
     Dates: start: 20080114, end: 20090113
  2. LUVOX [Suspect]
     Indication: DRUG EXPOSURE DURING PREGNANCY
     Dosage: 25 MG, 1 D, TRANSPLACENTAL, 75 MG, 1 D, TRANSPLACENTAL, 50 MG, 1 D, TRANSPLACENTAL
     Route: 064
     Dates: start: 20090114, end: 20090301
  3. LUVOX [Suspect]
     Indication: DRUG EXPOSURE DURING PREGNANCY
     Dosage: 25 MG, 1 D, TRANSPLACENTAL, 75 MG, 1 D, TRANSPLACENTAL, 50 MG, 1 D, TRANSPLACENTAL
     Route: 064
     Dates: start: 20090302, end: 20090626
  4. CLONAZEPAM [Suspect]
     Indication: DRUG EXPOSURE DURING PREGNANCY
     Dosage: 2 MG, 1 D, TRANSPLACENTAL; 4 MG, 1 D, TRANSPLACENTAL
     Route: 064
     Dates: start: 20090501, end: 20090612
  5. CLONAZEPAM [Suspect]
     Indication: DRUG EXPOSURE DURING PREGNANCY
     Dosage: 2 MG, 1 D, TRANSPLACENTAL; 4 MG, 1 D, TRANSPLACENTAL
     Route: 064
     Dates: start: 20090613

REACTIONS (9)
  - CONGENITAL ANOMALY [None]
  - CONGENITAL EYE DISORDER [None]
  - CYANOSIS NEONATAL [None]
  - HYPOTONIA NEONATAL [None]
  - INFANTILE APNOEIC ATTACK [None]
  - MATERNAL DRUGS AFFECTING FOETUS [None]
  - NOSE DEFORMITY [None]
  - RESPIRATORY DISORDER NEONATAL [None]
  - SOMNOLENCE NEONATAL [None]
